FAERS Safety Report 13445675 (Version 1)
Quarter: 2017Q2

REPORT INFORMATION
  Report Type: Spontaneous
  Country: US (occurrence: US)
  Receive Date: 20170416
  Receipt Date: 20170416
  Transmission Date: 20170830
  Serious: No
  Sender: FDA-Public Use
  Company Number: US-TEVA-758204ACC

PATIENT
  Age: 50 Year
  Sex: Female

DRUGS (11)
  1. METOPRO [Concomitant]
  2. STRATTERA [Concomitant]
     Active Substance: ATOMOXETINE HYDROCHLORIDE
  3. COPAXONE [Suspect]
     Active Substance: GLATIRAMER ACETATE
     Indication: MULTIPLE SCLEROSIS
     Route: 058
  4. NUVIGIL [Concomitant]
     Active Substance: ARMODAFINIL
  5. ASPIRIN. [Concomitant]
     Active Substance: ASPIRIN
  6. CARBAMAZEPIN [Concomitant]
     Active Substance: CARBAMAZEPINE
  7. KLONOPIN [Concomitant]
     Active Substance: CLONAZEPAM
  8. LAMOTRIGINE. [Concomitant]
     Active Substance: LAMOTRIGINE
  9. FISH OIL [Concomitant]
     Active Substance: FISH OIL
  10. VITAMIN D3 [Concomitant]
     Active Substance: CHOLECALCIFEROL
  11. FLUOXETINE [Concomitant]
     Active Substance: FLUOXETINE HYDROCHLORIDE

REACTIONS (1)
  - Fatigue [Unknown]

NARRATIVE: CASE EVENT DATE: 20170320
